FAERS Safety Report 21646559 (Version 1)
Quarter: 2022Q4

REPORT INFORMATION
  Report Type: Spontaneous
  Country: US (occurrence: US)
  Receive Date: 20221126
  Receipt Date: 20221126
  Transmission Date: 20230112
  Serious: No
  Sender: FDA-Public Use
  Company Number: US-JNJFOC-20221120071

PATIENT
  Sex: Male
  Weight: 52.664 kg

DRUGS (2)
  1. CONCERTA [Suspect]
     Active Substance: METHYLPHENIDATE HYDROCHLORIDE
     Indication: Attention deficit hyperactivity disorder
     Route: 065
     Dates: start: 202208
  2. INTUNIV [Concomitant]
     Active Substance: GUANFACINE HYDROCHLORIDE
     Indication: Product used for unknown indication
     Route: 065

REACTIONS (7)
  - Product dose omission issue [Unknown]
  - Disturbance in social behaviour [Unknown]
  - Behaviour disorder [Unknown]
  - Disturbance in attention [Unknown]
  - Restlessness [Unknown]
  - Abnormal behaviour [Unknown]
  - Stereotypy [Unknown]
